FAERS Safety Report 5563974-1 (Version None)
Quarter: 2007Q4

REPORT INFORMATION
  Report Type: 
  Country: None (occurrence: None)
  Receive Date: 20071217
  Receipt Date: 20071211
  Transmission Date: 20080405
  Serious: Yes (Life-Threatening, Hospitalization)
  Sender: FDA-Public Use
  Company Number: DE-ELI_LILLY_AND_COMPANY-DE200712002328

PATIENT
  Sex: Male
  Weight: 95 kg

DRUGS (16)
  1. BYETTA [Suspect]
     Dosage: 5 UG, 2/D
     Route: 058
     Dates: start: 20071017, end: 20071021
  2. METFORMIN HCL [Concomitant]
     Indication: DIABETES MELLITUS
     Dosage: 850 MG, IRREGULARLY
     Route: 048
     Dates: start: 20050101, end: 20071015
  3. METFORMIN HCL [Concomitant]
     Dosage: 850 MG, DAILY (1/D)
     Route: 048
     Dates: start: 20071017, end: 20071020
  4. METOHEXAL [Concomitant]
     Indication: HYPERTENSION
     Dosage: UNK, 1.5 DAILY
     Route: 048
     Dates: start: 20050801
  5. AMLODIPIN                          /00972401/ [Concomitant]
     Indication: HYPERTENSION
     Dosage: 5 MG, 2/D
     Route: 048
     Dates: start: 20000101
  6. BERLINSULIN H NORMAL [Concomitant]
     Dosage: 8 IU, DAILY (1/D)
     Dates: start: 20070901, end: 20071016
  7. BERLINSULIN H NORMAL [Concomitant]
     Dosage: 24 IU, DAILY (1/D)
     Dates: start: 20070901, end: 20071016
  8. BERLINSULIN H NORMAL [Concomitant]
     Dosage: 18 IU, DAILY (1/D)
     Dates: start: 20070901, end: 20071016
  9. BERLINSULIN H NORMAL [Concomitant]
     Dosage: 22 IU, DAILY (1/D)
     Dates: start: 20070901, end: 20071016
  10. BERLINSULIN H BASAL [Concomitant]
     Dosage: 24 IU, DAILY (1/D)
     Dates: start: 20070901, end: 20071016
  11. BERLINSULIN H BASAL [Concomitant]
     Dosage: 54 IU, DAILY (1/D)
     Dates: start: 20070901, end: 20071016
  12. GODAMED [Concomitant]
     Dosage: 100 MG, DAILY (1/D)
     Route: 048
     Dates: start: 19980101, end: 20071021
  13. FLOTRIN [Concomitant]
     Dosage: 5 MG, DAILY (1/D)
     Route: 048
     Dates: start: 19980101, end: 20071021
  14. FENOFIBRAT - SLOW RELEASE ^CT-ARZNEIMITTEL^ [Concomitant]
     Dosage: 250 MG, DAILY (1/D)
     Route: 048
     Dates: start: 20040101, end: 20071021
  15. NEXIUM [Concomitant]
     Dosage: 40 MG, 2/W
     Route: 048
     Dates: start: 20020101, end: 20071021
  16. TIMOPTIC [Concomitant]
     Dosage: UNK, UNK
     Dates: start: 20020101, end: 20071116

REACTIONS (1)
  - PANCREATITIS ACUTE [None]
